FAERS Safety Report 25801680 (Version 1)
Quarter: 2025Q3

REPORT INFORMATION
  Report Type: Spontaneous
  Country: US (occurrence: None)
  Receive Date: 20250912
  Receipt Date: 20250912
  Transmission Date: 20251020
  Serious: No
  Sender: FDA-CTU
  Company Number: None

PATIENT
  Age: 75 Year
  Sex: Male
  Weight: 87.3 kg

DRUGS (14)
  1. XTANDI [Suspect]
     Active Substance: ENZALUTAMIDE
     Indication: Prostate cancer
     Dosage: FREQUENCY : DAILY;?
     Route: 048
     Dates: start: 20250815, end: 20250910
  2. CLOBETASOL [Concomitant]
     Active Substance: CLOBETASOL
  3. HYDROCORTISONE [Concomitant]
     Active Substance: HYDROCORTISONE
  4. medrol 4mg dose pack [Concomitant]
  5. omeprazole 40mg capsule [Concomitant]
  6. TAMSULOSIN [Concomitant]
     Active Substance: TAMSULOSIN
  7. docusate 100mg capsule [Concomitant]
  8. ELIQUIS [Concomitant]
     Active Substance: APIXABAN
  9. dexamethasone 0.5mg tablet [Concomitant]
  10. AMLODIPINE [Concomitant]
     Active Substance: AMLODIPINE BESYLATE
  11. CITALOPRAM [Concomitant]
     Active Substance: CITALOPRAM
  12. LOSARTAN [Concomitant]
     Active Substance: LOSARTAN
  13. FAMOTIDINE [Concomitant]
     Active Substance: FAMOTIDINE
  14. Senna 8.6mg tablet [Concomitant]

REACTIONS (2)
  - Rash macular [None]
  - Quality of life decreased [None]

NARRATIVE: CASE EVENT DATE: 20250912
